FAERS Safety Report 8077568-X (Version None)
Quarter: 2012Q1

REPORT INFORMATION
  Report Type: 
  Country: None (occurrence: None)
  Receive Date: 20120127
  Receipt Date: 20120124
  Transmission Date: 20120608
  Serious: Yes (Life-Threatening, Hospitalization, Other)
  Sender: FDA-Public Use
  Company Number: GB-B.I. PHARMACEUTICALS,INC./RIDGEFIELD-2012-UK-00078UK

PATIENT
  Age: 64 Year
  Sex: Male
  Weight: 81 kg

DRUGS (6)
  1. SENNA [Concomitant]
  2. TRAMADOL HCL [Concomitant]
  3. PRADAXA [Suspect]
     Dosage: 110 MG
  4. ACETAMINOPHEN [Concomitant]
  5. PRADAXA [Suspect]
     Indication: THROMBOSIS PROPHYLAXIS
     Dosage: 220 MG
     Route: 048
     Dates: start: 20120106, end: 20120111
  6. IBUPROFEN [Concomitant]

REACTIONS (2)
  - DEEP VEIN THROMBOSIS [None]
  - TREATMENT FAILURE [None]
